FAERS Safety Report 5876974-9 (Version None)
Quarter: 2008Q3

REPORT INFORMATION
  Report Type: 
  Country: None (occurrence: None)
  Receive Date: 20080910
  Receipt Date: 20080828
  Transmission Date: 20090109
  Serious: Yes (Other)
  Sender: FDA-Public Use
  Company Number: PHHY2008GB20042

PATIENT

DRUGS (6)
  1. NEORAL [Suspect]
     Indication: PROPHYLAXIS AGAINST GRAFT VERSUS HOST DISEASE
     Dosage: 100 MG, BID
     Route: 048
     Dates: start: 20071016, end: 20080226
  2. GLEEVEC [Suspect]
     Indication: ACUTE LYMPHOCYTIC LEUKAEMIA
     Dosage: 400 MG, QD
     Route: 048
     Dates: start: 20071113
  3. MYCOPHENOLIC ACID [Concomitant]
     Dosage: 500 MG, BID
     Route: 048
  4. PREDNISOLONE [Concomitant]
     Route: 048
  5. RANITIDINE [Concomitant]
     Dosage: 75 MG, BID
     Route: 048
  6. SEPTRIN [Concomitant]
     Dosage: 480 MG, BID
     Route: 048

REACTIONS (3)
  - DRUG INTERACTION [None]
  - DRUG LEVEL INCREASED [None]
  - TREMOR [None]
